FAERS Safety Report 5782986-6 (Version None)
Quarter: 2008Q2

REPORT INFORMATION
  Report Type: 
  Country: None (occurrence: None)
  Receive Date: 20080619
  Receipt Date: 20080610
  Transmission Date: 20081010
  Serious: Yes (Other)
  Sender: FDA-Public Use
  Company Number: 08H-034-0314412-00

PATIENT
  Age: 43 Year
  Sex: Female

DRUGS (10)
  1. PROPOFOL INJECTABLE EMULSION 1% (10 MG/ML)(PROPOFOL 1% INJECTABLE EMUL [Suspect]
     Indication: GENERAL ANAESTHESIA
     Dosage: 58 MCG/KG/MIN, 3.5 MG/KG, TWICE, INFUSION; 3.5 MG/KG, INFUSION
     Dates: start: 20060614
  2. PROPOFOL INJECTABLE EMULSION 1% (10 MG/ML)(PROPOFOL 1% INJECTABLE EMUL [Suspect]
     Indication: GENERAL ANAESTHESIA
     Dosage: 58 MCG/KG/MIN, 3.5 MG/KG, TWICE, INFUSION; 3.5 MG/KG, INFUSION
     Dates: start: 20060614
  3. PROPOFOL INJECTABLE EMULSION 1% (10 MG/ML)(PROPOFOL 1% INJECTABLE EMUL [Suspect]
     Indication: GENERAL ANAESTHESIA
     Dosage: 58 MCG/KG/MIN, 3.5 MG/KG, TWICE, INFUSION; 3.5 MG/KG, INFUSION
     Dates: start: 20080613
  4. VALPROIC ACID [Concomitant]
  5. REMIFENTANYL (REMIFENTANIL) [Concomitant]
  6. LORAZEPAM [Concomitant]
  7. MIDAZOLAM HCL [Concomitant]
  8. FENTANYL [Concomitant]
  9. FLUIDS (PARENTERAL) [Concomitant]
  10. NOREPINEPHRINE BITARTRATE [Concomitant]

REACTIONS (2)
  - HYPOPERFUSION [None]
  - LACTIC ACIDOSIS [None]
